FAERS Safety Report 16643506 (Version 1)
Quarter: 2019Q3

REPORT INFORMATION
  Report Type: Spontaneous
  Country: US (occurrence: US)
  Receive Date: 20190729
  Receipt Date: 20190729
  Transmission Date: 20191004
  Serious: No
  Sender: FDA-Public Use
  Company Number: US-PRINSTON PHARMACEUTICAL INC.-2019PRN00412

PATIENT
  Age: 73 Year
  Sex: Male
  Weight: 68.03 kg

DRUGS (6)
  1. CLONAZEPAM. [Suspect]
     Active Substance: CLONAZEPAM
     Dosage: SMALL PIECE ^LIKE 1/8 OF A TABLET^ ONCE OR TWICE A DAYUNK
     Dates: start: 2019, end: 2019
  2. CLONAZEPAM. [Suspect]
     Active Substance: CLONAZEPAM
     Indication: ANXIETY
     Dosage: SMALL PIECE ^LIKE 1/8 OF A TABLET^ ONCE OR TWICE A DAY
     Route: 048
     Dates: start: 2019, end: 201903
  3. QUITE A FEW DIFFERENT MEDICATIONS [Concomitant]
  4. CLONAZEPAM (ACCORD) [Suspect]
     Active Substance: CLONAZEPAM
     Indication: ANXIETY
     Route: 048
  5. CLONAZEPAM. [Suspect]
     Active Substance: CLONAZEPAM
     Indication: ANXIETY
     Dosage: 1 MG, 4X/DAY
     Route: 048
     Dates: start: 201901, end: 2019
  6. CLONAZEPAM. [Suspect]
     Active Substance: CLONAZEPAM
     Dosage: 0.5 MG; TRYING TO WEAN DOWN
     Route: 048
     Dates: start: 2019, end: 2019

REACTIONS (4)
  - Somnolence [Recovered/Resolved]
  - Wrong technique in product usage process [Recovered/Resolved]
  - Therapeutic response increased [Recovered/Resolved]
  - Product substitution issue [Recovered/Resolved]

NARRATIVE: CASE EVENT DATE: 201901
